FAERS Safety Report 17571608 (Version 1)
Quarter: 2020Q1

REPORT INFORMATION
  Report Type: Spontaneous
  Country: US (occurrence: US)
  Receive Date: 20200320
  Receipt Date: 20200320
  Transmission Date: 20200409
  Serious: Yes (Other)
  Sender: FDA-Public Use
  Company Number: None

PATIENT
  Age: 74 Year
  Sex: Female
  Weight: 68.63 kg

DRUGS (5)
  1. IBRANCE [Suspect]
     Active Substance: PALBOCICLIB
     Indication: BREAST CANCER FEMALE
     Dosage: ?          OTHER FREQUENCY:EVERY 3 WEEKS;?
     Route: 048
     Dates: start: 20190206, end: 20200320
  2. METFORMIN HCL 500 MG [Concomitant]
     Active Substance: METFORMIN HYDROCHLORIDE
  3. LEVOTHYROXINE SODIUM 100 MCG [Concomitant]
     Active Substance: LEVOTHYROXINE
  4. ATORVASTATIN CALCIUM 20 MG [Concomitant]
  5. LETROZOLE 2.5 MG [Concomitant]
     Active Substance: LETROZOLE

REACTIONS (1)
  - Disease progression [None]

NARRATIVE: CASE EVENT DATE: 20200320
